FAERS Safety Report 4410655-3 (Version None)
Quarter: 2004Q3

REPORT INFORMATION
  Report Type: 
  Country: None (occurrence: None)
  Receive Date: 20040728
  Receipt Date: 20040728
  Transmission Date: 20050211
  Serious: Yes (Other)
  Sender: FDA-Public Use
  Company Number: None

PATIENT
  Age: 79 Year
  Sex: Female
  Weight: 56.246 kg

DRUGS (2)
  1. ALBUTEROL SULATE [Suspect]
     Indication: CHRONIC OBSTRUCTIVE AIRWAYS DISEASE
     Dosage: ONE TUBE FOUR TIMES RESPIRATORY
     Route: 055
     Dates: start: 20010601, end: 20040701
  2. IPRATROPIUM BROMIDE [Suspect]
     Indication: CHRONIC OBSTRUCTIVE AIRWAYS DISEASE
     Dosage: 1 TUBE FOUR TIMES RESPIRATORY
     Route: 055
     Dates: start: 20010601, end: 20040701

REACTIONS (1)
  - MEDICATION ERROR [None]
